FAERS Safety Report 19990802 (Version 1)
Quarter: 2021Q4

REPORT INFORMATION
  Report Type: Spontaneous
  Country: US (occurrence: US)
  Receive Date: 20211023
  Receipt Date: 20211023
  Transmission Date: 20220303
  Serious: Yes (Death)
  Sender: FDA-Public Use
  Company Number: None

PATIENT
  Age: 8 Year
  Sex: Female
  Weight: 83 kg

DRUGS (4)
  1. DEXAMETHASONE [Suspect]
     Active Substance: DEXAMETHASONE
     Dates: end: 20210331
  2. METHOTREXATE [Suspect]
     Active Substance: METHOTREXATE
     Dates: end: 20210311
  3. ONCASPAR [Suspect]
     Active Substance: PEGASPARGASE
     Dates: end: 20210307
  4. VINCRISTINE SULFATE [Suspect]
     Active Substance: VINCRISTINE SULFATE
     Dates: end: 20210318

REACTIONS (15)
  - Febrile neutropenia [None]
  - Septic shock [None]
  - Klebsiella bacteraemia [None]
  - Meningitis [None]
  - Acute respiratory failure [None]
  - Generalised oedema [None]
  - Clostridium difficile colitis [None]
  - Fungaemia [None]
  - Adrenal insufficiency [None]
  - COVID-19 pneumonia [None]
  - Urinary tract infection [None]
  - Klebsiella infection [None]
  - Tachycardia [None]
  - Tachypnoea [None]
  - Hypoxia [None]

NARRATIVE: CASE EVENT DATE: 20210603
